FAERS Safety Report 4517666-8 (Version None)
Quarter: 2004Q4

REPORT INFORMATION
  Report Type: 
  Country: None (occurrence: None)
  Receive Date: 20041202
  Receipt Date: 20041202
  Transmission Date: 20050328
  Serious: Yes (Other)
  Sender: FDA-Public Use
  Company Number: None

PATIENT
  Age: 23 Year
  Sex: Female
  Weight: 50.8029 kg

DRUGS (1)
  1. SPIRONOLACTONE [Suspect]
     Indication: ANDROGENS INCREASED
     Dosage: 100 MGM BID PO
     Route: 048
     Dates: start: 20041001, end: 20041001

REACTIONS (2)
  - MIGRAINE [None]
  - VISION BLURRED [None]
